FAERS Safety Report 9296774 (Version 6)
Quarter: 2016Q2

REPORT INFORMATION
  Report Type: Spontaneous
  Country: US (occurrence: US)
  Receive Date: 20130517
  Receipt Date: 20160526
  Transmission Date: 20160815
  Serious: Yes (Other)
  Sender: FDA-Public Use
  Company Number: US-009507513-1305USA010165

PATIENT
  Sex: Male
  Weight: 91.34 kg

DRUGS (2)
  1. TOPROL XL [Suspect]
     Active Substance: METOPROLOL SUCCINATE
     Indication: PRODUCT USED FOR UNKNOWN INDICATION
     Dosage: UNK UNK, UNKNOWN
     Route: 065
     Dates: start: 2005
  2. PROPECIA [Suspect]
     Active Substance: FINASTERIDE
     Indication: ALOPECIA
     Dosage: 1 MG, UNKNOWN
     Route: 048
     Dates: start: 20090714, end: 20120716

REACTIONS (11)
  - Brain injury [Unknown]
  - Hormone level abnormal [Unknown]
  - Tenderness [Unknown]
  - Soft tissue injury [Unknown]
  - Genital disorder male [Unknown]
  - Back pain [Not Recovered/Not Resolved]
  - Hepatic enzyme increased [Unknown]
  - Sexual dysfunction [Not Recovered/Not Resolved]
  - Erectile dysfunction [Not Recovered/Not Resolved]
  - Libido decreased [Not Recovered/Not Resolved]
  - Semen volume decreased [Unknown]

NARRATIVE: CASE EVENT DATE: 2009
